FAERS Safety Report 8760856 (Version 3)
Quarter: 2012Q4

REPORT INFORMATION
  Report Type: 
  Country: US (occurrence: US)
  Receive Date: 20120830
  Receipt Date: 20121119
  Transmission Date: 20130627
  Serious: Yes (Other)
  Sender: FDA-Public Use
  Company Number: US-BAYER-2012-086343

PATIENT
  Age: 40 Year
  Sex: Female

DRUGS (1)
  1. MIRENA [Suspect]
     Indication: CONTRACEPTION
     Dosage: 20 ?g/d, CONT
     Route: 015
     Dates: start: 200707, end: 201208

REACTIONS (6)
  - Device difficult to use [Recovered/Resolved]
  - Incorrect drug administration duration [Recovered/Resolved]
  - Device related infection [None]
  - Procedural pain [Not Recovered/Not Resolved]
  - Device dislocation [None]
  - Libido decreased [Not Recovered/Not Resolved]
